FAERS Safety Report 7866315-X (Version None)
Quarter: 2011Q4

REPORT INFORMATION
  Report Type: 
  Country: None (occurrence: None)
  Receive Date: 20111028
  Receipt Date: 20110531
  Transmission Date: 20120403
  Serious: No
  Sender: FDA-Public Use
  Company Number: US-GLAXOSMITHKLINE-A0929677A

PATIENT
  Age: 86 Year
  Sex: Female

DRUGS (11)
  1. KLOR-CON [Concomitant]
  2. TRIAMTERENE AND HYDROCHLOROTHIAZIDE [Concomitant]
  3. NEXIUM [Concomitant]
  4. CALCIUM CARBONATE [Concomitant]
  5. ADVAIR DISKUS 100/50 [Suspect]
     Indication: CHRONIC OBSTRUCTIVE PULMONARY DISEASE
     Dosage: 1PUFF TWICE PER DAY
     Route: 055
     Dates: start: 19920101
  6. DILTIAZEM HCL [Concomitant]
  7. VITAMIN D [Concomitant]
  8. BENEFIBER [Concomitant]
  9. VYTORIN [Concomitant]
  10. LORAZEPAM [Concomitant]
  11. MIRALAX [Concomitant]

REACTIONS (4)
  - PRODUCT QUALITY ISSUE [None]
  - NERVOUSNESS [None]
  - STOMATITIS [None]
  - TOOTH EROSION [None]
